FAERS Safety Report 8015938-6 (Version None)
Quarter: 2011Q4

REPORT INFORMATION
  Report Type: 
  Country: None (occurrence: None)
  Receive Date: 20111230
  Receipt Date: 20111227
  Transmission Date: 20120403
  Serious: Yes (Hospitalization)
  Sender: FDA-Public Use
  Company Number: RU-ROCHE-1026095

PATIENT
  Sex: Male
  Weight: 87 kg

DRUGS (2)
  1. AVASTIN [Suspect]
     Indication: RENAL CANCER
     Route: 042
     Dates: start: 20091021
  2. INTERFERON ALFA [Suspect]
     Indication: RENAL CANCER
     Route: 058
     Dates: start: 20091021, end: 20101201

REACTIONS (2)
  - OSTEONECROSIS OF JAW [None]
  - ABSCESS JAW [None]
